FAERS Safety Report 4331442-0 (Version None)
Quarter: 2004Q1

REPORT INFORMATION
  Report Type: 
  Country: None (occurrence: None)
  Receive Date: 20040331
  Receipt Date: 20040319
  Transmission Date: 20041129
  Serious: Yes (Hospitalization)
  Sender: FDA-Public Use
  Company Number: 2004PK00532

PATIENT
  Age: 43 Year
  Weight: 110 kg

DRUGS (6)
  1. NEXIUM [Suspect]
     Indication: ULCER
     Dosage: 20 MG BID PO
     Route: 048
     Dates: start: 20031010, end: 20031121
  2. ENAHEXAL [Suspect]
     Indication: HYPERTENSION
     Dosage: 5 MG DAILY PO
     Route: 048
     Dates: end: 20031121
  3. SIMVASTATIN RATIONPHARM [Suspect]
     Indication: HYPERCHOLESTEROLAEMIA
     Dosage: 40 MG DAILY PO
     Route: 048
     Dates: start: 20000101, end: 20031121
  4. DIABETASE [Concomitant]
  5. KERLONE [Concomitant]
  6. URIPURINOL [Concomitant]

REACTIONS (3)
  - DRUG INTERACTION [None]
  - HEPATIC STEATOSIS [None]
  - OEDEMATOUS PANCREATITIS [None]
